FAERS Safety Report 21202189 (Version 3)
Quarter: 2022Q4

REPORT INFORMATION
  Report Type: Report from Study
  Country: US (occurrence: US)
  Receive Date: 20220811
  Receipt Date: 20221013
  Transmission Date: 20230113
  Serious: Yes (Other)
  Sender: FDA-Public Use
  Company Number: US-NOVARTISPH-NVSC2022US181915

PATIENT
  Sex: Female

DRUGS (1)
  1. KISQALI [Suspect]
     Active Substance: RIBOCICLIB
     Indication: Breast cancer
     Dosage: 600 MG, QD
     Route: 048

REACTIONS (9)
  - Neoplasm malignant [Unknown]
  - Diarrhoea [Recovering/Resolving]
  - Nausea [Recovered/Resolved]
  - Fatigue [Not Recovered/Not Resolved]
  - Dry mouth [Recovered/Resolved]
  - Decreased appetite [Recovered/Resolved]
  - Pain [Not Recovered/Not Resolved]
  - Anxiety [Unknown]
  - Product dose omission issue [Recovered/Resolved]
